APPROVED DRUG PRODUCT: CLARITHROMYCIN
Active Ingredient: CLARITHROMYCIN
Strength: 500MG
Dosage Form/Route: TABLET, EXTENDED RELEASE;ORAL
Application: A208987 | Product #001 | TE Code: AB
Applicant: SUNSHINE LAKE PHARMA CO LTD
Approved: Jul 9, 2018 | RLD: No | RS: No | Type: RX